FAERS Safety Report 15324853 (Version 1)
Quarter: 2018Q3

REPORT INFORMATION
  Report Type: Spontaneous
  Country: US (occurrence: US)
  Receive Date: 20180822
  Receipt Date: 20180822
  Transmission Date: 20181010
  Serious: Yes (Hospitalization)
  Sender: FDA-Public Use
  Company Number: None

PATIENT
  Age: 42 Year
  Sex: Female
  Weight: 72 kg

DRUGS (2)
  1. PARADIGM PUMP [Concomitant]
     Active Substance: DEVICE
  2. HUMALOG [Suspect]
     Active Substance: INSULIN LISPRO
     Indication: DIABETES MELLITUS
     Dosage: ?          QUANTITY:2 10;?
     Route: 058
     Dates: start: 20180815, end: 20180822

REACTIONS (5)
  - Vomiting [None]
  - Liquid product physical issue [None]
  - Therapy change [None]
  - Drug ineffective [None]
  - Blood glucose increased [None]

NARRATIVE: CASE EVENT DATE: 20180817
